FAERS Safety Report 4514958-3 (Version None)
Quarter: 2004Q4

REPORT INFORMATION
  Report Type: 
  Country: None (occurrence: None)
  Receive Date: 20041129
  Receipt Date: 20041129
  Transmission Date: 20050328
  Serious: Yes (Hospitalization)
  Sender: FDA-Public Use
  Company Number: None

PATIENT
  Age: 53 Year
  Sex: Male
  Weight: 124.2856 kg

DRUGS (1)
  1. BEXTRA [Suspect]
     Indication: OSTEOARTHRITIS
     Dosage: 10MG   QD   ORAL
     Route: 048
     Dates: start: 20041103, end: 20041111

REACTIONS (2)
  - RASH MACULO-PAPULAR [None]
  - STOMATITIS [None]
